FAERS Safety Report 8344874-0 (Version None)
Quarter: 2012Q2

REPORT INFORMATION
  Report Type: 
  Country: None (occurrence: None)
  Receive Date: 20120508
  Receipt Date: 20120503
  Transmission Date: 20120825
  Serious: Yes (Other)
  Sender: FDA-Public Use
  Company Number: DE-GLAXOSMITHKLINE-D0075472A

PATIENT
  Sex: Female

DRUGS (1)
  1. POTIGA [Suspect]
     Indication: EPILEPSY
     Route: 048

REACTIONS (2)
  - CELLULITIS [None]
  - OEDEMA [None]
